FAERS Safety Report 5787108-3 (Version None)
Quarter: 2008Q2

REPORT INFORMATION
  Report Type: 
  Country: None (occurrence: None)
  Receive Date: 20080625
  Receipt Date: 20080617
  Transmission Date: 20081010
  Serious: Yes (Other)
  Sender: FDA-Public Use
  Company Number: GB-BAUSCH-2008BL002690

PATIENT
  Age: 58 Year
  Sex: Male

DRUGS (8)
  1. PREDNISOLONE [Suspect]
     Indication: LYMPHOMA
     Dates: start: 20010101
  2. BLEOMYCIN SULFATE [Suspect]
     Indication: LYMPHOMA
     Dates: start: 20010101
  3. CYCLOPHOSPHAMIDE [Suspect]
     Indication: LYMPHOMA
     Dates: start: 20010101
  4. DOXORUBICIN HYDROCHLORIDE [Suspect]
     Indication: LYMPHOMA
     Dates: start: 20010101
  5. ETOPOSIDE [Suspect]
     Indication: LYMPHOMA
     Dates: start: 20010101
  6. METHOTREXATE [Suspect]
     Indication: LYMPHOMA
     Dates: start: 20010101
  7. VINCRISTINE SULFATE [Suspect]
     Indication: LYMPHOMA
     Dates: start: 20010101
  8. CHLORAMBUCIL [Concomitant]
     Indication: LYMPHOMA
     Route: 048
     Dates: start: 19980101

REACTIONS (4)
  - BRONCHOSPASM [None]
  - DRUG HYPERSENSITIVITY [None]
  - OEDEMA PERIPHERAL [None]
  - WHEEZING [None]
